FAERS Safety Report 17186147 (Version 1)
Quarter: 2019Q4

REPORT INFORMATION
  Report Type: Spontaneous
  Country: SE (occurrence: SE)
  Receive Date: 20191220
  Receipt Date: 20191220
  Transmission Date: 20200122
  Serious: Yes (Hospitalization)
  Sender: FDA-Public Use
  Company Number: SE-MYLANLABS-2019M1126658

PATIENT
  Sex: Female

DRUGS (1)
  1. LERGIGAN (PROMETHAZINE) [Suspect]
     Active Substance: PROMETHAZINE HYDROCHLORIDE
     Indication: PRODUCT USED FOR UNKNOWN INDICATION
     Dosage: OKLARA MANGDER, UPPGIFTER FINNS 20 X 50 MG MEN MYCKET OSAKERT
     Route: 048
     Dates: start: 20190513, end: 20190513

REACTIONS (7)
  - Hallucination, visual [Unknown]
  - Intentional overdose [Unknown]
  - Dysarthria [Unknown]
  - Intentional self-injury [Unknown]
  - Depressed level of consciousness [Unknown]
  - Akathisia [Unknown]
  - Tachycardia [Unknown]

NARRATIVE: CASE EVENT DATE: 20190513
